FAERS Safety Report 24274852 (Version 1)
Quarter: 2024Q3

REPORT INFORMATION
  Report Type: Report from Study
  Country: US (occurrence: US)
  Receive Date: 20240902
  Receipt Date: 20240902
  Transmission Date: 20241016
  Serious: No
  Sender: ALEXION PHARMACEUTICALS
  Company Number: US-AstraZeneca-CH-00693238A

PATIENT
  Age: 75 Year
  Sex: Female

DRUGS (1)
  1. ULTOMIRIS [Suspect]
     Active Substance: RAVULIZUMAB-CWVZ
     Indication: Myasthenia gravis
     Dosage: UNK
     Route: 065

REACTIONS (6)
  - Blood pressure increased [Unknown]
  - Fatigue [Unknown]
  - Muscular weakness [Unknown]
  - Arthralgia [Unknown]
  - Neck pain [Unknown]
  - Discouragement [Unknown]

NARRATIVE: CASE EVENT DATE: 20240827
